FAERS Safety Report 7709942-2 (Version None)
Quarter: 2011Q3

REPORT INFORMATION
  Report Type: 
  Country: None (occurrence: None)
  Receive Date: 20110825
  Receipt Date: 20110818
  Transmission Date: 20111222
  Serious: Yes (Death)
  Sender: FDA-Public Use
  Company Number: US-CELGENEUS-163-21880-11043061

PATIENT
  Sex: Female

DRUGS (10)
  1. LASIX [Concomitant]
     Route: 065
  2. PREDNISONE [Concomitant]
     Route: 065
  3. ACYCLOVIR [Concomitant]
     Dosage: 200 MILLIGRAM
     Route: 065
     Dates: start: 20110308
  4. SIMAVASTATIN [Concomitant]
     Route: 065
  5. REVLIMID [Suspect]
     Indication: MULTIPLE MYELOMA
     Dosage: 5 MILLIGRAM
     Route: 048
     Dates: start: 20110301, end: 20110401
  6. ACYCLOVIR [Concomitant]
     Indication: PROPHYLAXIS
  7. PRILOSEC [Concomitant]
     Route: 065
  8. DIGOXIN [Concomitant]
     Route: 065
  9. LEVOTHYROXINE SODIUM [Concomitant]
     Route: 065
  10. ALDACTONE [Concomitant]
     Route: 065

REACTIONS (1)
  - HEPATIC FAILURE [None]
